FAERS Safety Report 5566658-9 (Version None)
Quarter: 2007Q4

REPORT INFORMATION
  Report Type: 
  Country: None (occurrence: None)
  Receive Date: 20071219
  Receipt Date: 20071207
  Transmission Date: 20080405
  Serious: Yes (Life-Threatening)
  Sender: FDA-Public Use
  Company Number: JP-ROCHE-534378

PATIENT
  Age: 49 Year
  Sex: Male
  Weight: 50 kg

DRUGS (12)
  1. PEGASYS [Suspect]
     Route: 058
     Dates: start: 20061220, end: 20070528
  2. PEGASYS [Suspect]
     Route: 058
     Dates: start: 20070908, end: 20071110
  3. LENDORMIN [Concomitant]
     Dosage: DOSAGE TAKEN AS NEEDED
     Route: 048
     Dates: start: 20020107
  4. CALTAN [Concomitant]
     Route: 048
  5. ALFAROL [Concomitant]
     Route: 048
     Dates: start: 20070826
  6. ADONA [Concomitant]
     Dosage: ROUTE: INTRAVENOUS NOT OTHERWISE SPECIFIED
     Route: 042
  7. RENAGEL [Concomitant]
     Route: 048
     Dates: start: 20060114
  8. GASMOTIN [Concomitant]
     Route: 048
     Dates: start: 20060424
  9. SELBEX [Concomitant]
     Route: 048
     Dates: start: 20060424
  10. RYTHMODAN [Concomitant]
     Route: 048
     Dates: start: 20060508
  11. NERIPROCT [Concomitant]
     Route: 054
     Dates: start: 20071010
  12. BUFFERIN [Concomitant]
     Route: 048
     Dates: start: 20071110, end: 20071110

REACTIONS (2)
  - MENINGITIS [None]
  - SEPSIS [None]
